FAERS Safety Report 4869079-7 (Version None)
Quarter: 2005Q4

REPORT INFORMATION
  Report Type: 
  Country: None (occurrence: None)
  Receive Date: 20051222
  Receipt Date: 20051222
  Transmission Date: 20060501
  Serious: Yes (Other)
  Sender: FDA-Public Use
  Company Number: None

PATIENT
  Age: 77 Year
  Sex: Male

DRUGS (1)
  1. IMPACTED WEDGE TISSUE [Suspect]

REACTIONS (2)
  - MEDICATION ERROR [None]
  - POOR QUALITY DRUG ADMINISTERED [None]
